FAERS Safety Report 15504537 (Version 2)
Quarter: 2018Q4

REPORT INFORMATION
  Report Type: Report from Study
  Country: US (occurrence: US)
  Receive Date: 20181016
  Receipt Date: 20181113
  Transmission Date: 20190205
  Serious: Yes (Other)
  Sender: FDA-Public Use
  Company Number: US-ROCHE-2199755

PATIENT
  Sex: Female

DRUGS (22)
  1. NORVASC [Concomitant]
     Active Substance: AMLODIPINE BESYLATE
  2. METHOTREXATE. [Concomitant]
     Active Substance: METHOTREXATE
  3. ASPIRIN. [Concomitant]
     Active Substance: ASPIRIN
  4. TUDORZA [Concomitant]
     Active Substance: ACLIDINIUM BROMIDE
  5. CLARITIN [Concomitant]
     Active Substance: LORATADINE
  6. NUTROPIN AQ [Suspect]
     Active Substance: SOMATROPIN
     Indication: PRODUCT USED FOR UNKNOWN INDICATION
     Route: 058
  7. HUMALOG [Concomitant]
     Active Substance: INSULIN LISPRO
  8. HYDRALAZINE [Concomitant]
     Active Substance: HYDRALAZINE HYDROCHLORIDE
  9. SYNTHROID [Concomitant]
     Active Substance: LEVOTHYROXINE SODIUM
  10. SYMBICORT [Concomitant]
     Active Substance: BUDESONIDE\FORMOTEROL FUMARATE DIHYDRATE
  11. FOLIC ACID. [Concomitant]
     Active Substance: FOLIC ACID
  12. PREDNISONE. [Concomitant]
     Active Substance: PREDNISONE
  13. NEXIUM [Concomitant]
     Active Substance: ESOMEPRAZOLE MAGNESIUM
  14. LASIX [Concomitant]
     Active Substance: FUROSEMIDE
  15. VITAMIN D3 [Concomitant]
     Active Substance: CHOLECALCIFEROL
  16. ACYCLOVIR. [Concomitant]
     Active Substance: ACYCLOVIR
  17. PROAIR HFA [Concomitant]
     Active Substance: ALBUTEROL SULFATE
  18. XANAX [Concomitant]
     Active Substance: ALPRAZOLAM
  19. ALDACTONE [Concomitant]
     Active Substance: SPIRONOLACTONE
  20. RANEXA [Concomitant]
     Active Substance: RANOLAZINE
  21. NITROGLYCERIN. [Concomitant]
     Active Substance: NITROGLYCERIN
  22. DUONEB [Concomitant]
     Active Substance: ALBUTEROL SULFATE\IPRATROPIUM BROMIDE

REACTIONS (10)
  - Neurosarcoidosis [Unknown]
  - Dyspnoea [Unknown]
  - Wheezing [Unknown]
  - Seizure [Unknown]
  - Psoriasis [Unknown]
  - Urinary tract infection [Unknown]
  - Herpes zoster [Unknown]
  - Fatigue [Unknown]
  - Asthenia [Unknown]
  - Sepsis [Unknown]
